FAERS Safety Report 10019339 (Version 1)
Quarter: 2014Q1

REPORT INFORMATION
  Report Type: Spontaneous
  Country: PT (occurrence: PT)
  Receive Date: 20140318
  Receipt Date: 20140318
  Transmission Date: 20141002
  Serious: Yes (Life-Threatening, Hospitalization)
  Sender: FDA-Public Use
  Company Number: PT-WATSON-2014-04770

PATIENT
  Age: 57 Year
  Sex: Male

DRUGS (7)
  1. VALPROIC ACID (UNKNOWN) [Suspect]
     Indication: EPILEPSY
     Dosage: 1500 MG, DAILY
     Route: 065
  2. VALPROIC ACID (UNKNOWN) [Suspect]
     Dosage: 1000 MG, DAILY
     Route: 065
  3. CAPTOPRIL [Concomitant]
     Indication: PRODUCT USED FOR UNKNOWN INDICATION
     Dosage: 25 MG, BID
     Route: 065
  4. METFORMIN [Concomitant]
     Indication: PRODUCT USED FOR UNKNOWN INDICATION
     Dosage: 1000 MG, BID
     Route: 065
  5. ASPIRIN [Concomitant]
     Indication: TRANSIENT ISCHAEMIC ATTACK
     Dosage: 300 MG, DAILY
     Route: 065
  6. SIMVASTATIN [Concomitant]
     Indication: TRANSIENT ISCHAEMIC ATTACK
     Dosage: 40 MG, DAILY
     Route: 065
  7. AMOXICILLIN W/CLAVULANIC ACID [Concomitant]
     Indication: URINARY TRACT INFECTION
     Dosage: UNK
     Route: 065

REACTIONS (1)
  - Hyperammonaemic encephalopathy [Recovered/Resolved]
